FAERS Safety Report 7979497-6 (Version None)
Quarter: 2011Q4

REPORT INFORMATION
  Report Type: 
  Country: None (occurrence: None)
  Receive Date: 20111129
  Receipt Date: 20110831
  Transmission Date: 20120403
  Serious: Yes (Other)
  Sender: FDA-Public Use
  Company Number: PHEH2011US01107

PATIENT
  Age: 54 Year
  Sex: Male

DRUGS (6)
  1. PRAVASTATIN [Concomitant]
  2. COQ10 (UBIDECARENONE) [Concomitant]
  3. AMLODIPINE [Suspect]
     Dosage: UNK UKN, UNK
  4. ASPIRIN [Concomitant]
  5. EXFORGE HCT (VALSARTAN, AMLODIPINE, HYDROCHLOROTHIAZIDE) UNKNOWN [Suspect]
     Indication: HYPERTENSION
     Dosage: 1 DF (1/60), UNK, ORAL
     Route: 048
  6. NORVASC [Suspect]
     Dosage: UNK UKN, UNK

REACTIONS (7)
  - FATIGUE [None]
  - ALOPECIA [None]
  - HEART RATE DECREASED [None]
  - BLOOD PRESSURE INCREASED [None]
  - HEART RATE INCREASED [None]
  - SWELLING [None]
  - MUSCLE SPASMS [None]
